FAERS Safety Report 6806888-9 (Version None)
Quarter: 2010Q2

REPORT INFORMATION
  Report Type: 
  Country: None (occurrence: None)
  Receive Date: 20100629
  Receipt Date: 20080520
  Transmission Date: 20101027
  Serious: Yes (Hospitalization, Other)
  Sender: FDA-Public Use
  Company Number: US-PFIZER INC-2008043775

PATIENT
  Sex: Female

DRUGS (13)
  1. XANAX [Suspect]
     Route: 048
     Dates: end: 20070320
  2. FENTANYL CITRATE [Suspect]
     Indication: PAIN
     Dosage: 200MCG,THREE TIMES DAILY AS NEEDED
     Route: 048
     Dates: start: 20061027, end: 20080320
  3. ACTIQ [Suspect]
     Indication: HEADACHE
     Dosage: 600MCG,THREE TIMES DAILY AS NEEDED
     Route: 048
     Dates: start: 20040707
  4. ACTIQ [Suspect]
     Indication: TRIGEMINAL NEURALGIA
  5. ACTIQ [Suspect]
     Indication: FIBROMYALGIA
  6. ACTIQ [Suspect]
     Indication: DENTAL DISCOMFORT
  7. DILAUDID [Suspect]
     Indication: PAIN
     Dosage: 2MG,EVERY 4 HOURS AS NEEDED
     Route: 048
     Dates: end: 20070301
  8. AMBIEN [Suspect]
     Indication: PAIN
     Route: 048
     Dates: end: 20070319
  9. DEMEROL [Suspect]
     Indication: PAIN
     Dosage: 50MG,EVERY 6 HOURS AS NEEDED
     Route: 048
     Dates: end: 20070301
  10. CYMBALTA [Concomitant]
  11. CYMBALTA [Concomitant]
     Dates: start: 20070325
  12. ZANAFLEX [Concomitant]
     Dates: end: 20070320
  13. ZANAFLEX [Concomitant]
     Dates: start: 20070325

REACTIONS (10)
  - DENTAL CARIES [None]
  - DEPRESSION [None]
  - DRUG PRESCRIBING ERROR [None]
  - NAUSEA [None]
  - PANIC ATTACK [None]
  - POLYSUBSTANCE DEPENDENCE [None]
  - SLEEP DISORDER [None]
  - SUBSTANCE ABUSE [None]
  - TREMOR [None]
  - WITHDRAWAL SYNDROME [None]
